FAERS Safety Report 5454894-1 (Version None)
Quarter: 2007Q3

REPORT INFORMATION
  Report Type: 
  Country: None (occurrence: None)
  Receive Date: 20070917
  Receipt Date: 20061024
  Transmission Date: 20080115
  Serious: No
  Sender: FDA-Public Use
  Company Number: US-ASTRAZENECA-2006UW20523

PATIENT
  Sex: Male

DRUGS (1)
  1. SEROQUEL [Suspect]
     Indication: BIPOLAR DISORDER
     Route: 048

REACTIONS (5)
  - CONFUSIONAL STATE [None]
  - FATIGUE [None]
  - IMPAIRED DRIVING ABILITY [None]
  - LETHARGY [None]
  - VISION BLURRED [None]
